FAERS Safety Report 16765093 (Version 1)
Quarter: 2019Q3

REPORT INFORMATION
  Report Type: Spontaneous
  Country: US (occurrence: US)
  Receive Date: 20190712
  Receipt Date: 20190712
  Transmission Date: 20191005
  Serious: No
  Sender: FDA-Public Use
  Company Number: None

PATIENT
  Age: 53 Year
  Sex: Male

DRUGS (5)
  1. PROCHLORPERAZINE. [Concomitant]
     Active Substance: PROCHLORPERAZINE
  2. ZYTIGA [Suspect]
     Active Substance: ABIRATERONE ACETATE
     Indication: PROSTATE CANCER
     Route: 048
  3. CITRACAL [Concomitant]
     Active Substance: CALCIUM CITRATE
  4. PREDNISONE. [Concomitant]
     Active Substance: PREDNISONE
  5. OXYMETAZOLINE [Concomitant]
     Active Substance: OXYMETAZOLINE

REACTIONS (5)
  - Memory impairment [None]
  - Fatigue [None]
  - Rash pruritic [None]
  - Nausea [None]
  - Aphasia [None]
